FAERS Safety Report 21768504 (Version 1)
Quarter: 2022Q4

REPORT INFORMATION
  Report Type: Spontaneous
  Country: US (occurrence: None)
  Receive Date: 20221221
  Receipt Date: 20221221
  Transmission Date: 20230113
  Serious: No
  Sender: FDA-Public Use
  Company Number: None

PATIENT
  Sex: Female
  Weight: 80.74 kg

DRUGS (15)
  1. VERZENIO [Suspect]
     Active Substance: ABEMACICLIB
     Indication: Breast cancer female
     Dosage: FREQUENCY : TWICE A DAY;?
     Route: 048
     Dates: start: 20220121
  2. ATORVASTATIN [Concomitant]
     Active Substance: ATORVASTATIN
  3. FAMOTIDINE [Concomitant]
     Active Substance: FAMOTIDINE
  4. FISH OIL [Concomitant]
     Active Substance: FISH OIL
  5. IMITREX [Concomitant]
     Active Substance: SUMATRIPTAN SUCCINATE
  6. LETROZOLE [Concomitant]
     Active Substance: LETROZOLE
  7. LISINOPRIL [Concomitant]
     Active Substance: LISINOPRIL
  8. METFORMIN [Concomitant]
     Active Substance: METFORMIN HYDROCHLORIDE
  9. VITAMINS [Concomitant]
     Active Substance: VITAMINS
  10. OMEPRAZOLE [Concomitant]
     Active Substance: OMEPRAZOLE
  11. OS-CAL CALCIUM + D3 [Concomitant]
  12. PROPRANOLOL [Concomitant]
     Active Substance: PROPRANOLOL HYDROCHLORIDE
  13. VENLAFAXINE [Concomitant]
     Active Substance: VENLAFAXINE HYDROCHLORIDE
  14. VITAMIN B12 [Concomitant]
     Active Substance: CYANOCOBALAMIN
  15. VITAMIN C [Concomitant]
     Active Substance: ASCORBIC ACID

REACTIONS (2)
  - Haemoglobin decreased [None]
  - Therapy change [None]
